FAERS Safety Report 8050045-8 (Version None)
Quarter: 2012Q1

REPORT INFORMATION
  Report Type: 
  Country: None (occurrence: None)
  Receive Date: 20120117
  Receipt Date: 20120106
  Transmission Date: 20120608
  Serious: Yes (Death, Other)
  Sender: FDA-Public Use
  Company Number: CA-JNJFOC-20100404275

PATIENT
  Sex: Male
  Weight: 104 kg

DRUGS (6)
  1. REMICADE [Suspect]
     Route: 042
     Dates: end: 20100401
  2. STELARA [Suspect]
     Indication: PSORIASIS
     Route: 058
     Dates: start: 20090414, end: 20090505
  3. ANTIHISTAMINES [Concomitant]
  4. ACETAMINOPHEN [Concomitant]
  5. REMICADE [Suspect]
     Route: 042
     Dates: start: 20091001
  6. REMICADE [Suspect]
     Indication: PSORIASIS
     Route: 042

REACTIONS (1)
  - HEPATIC NEOPLASM MALIGNANT [None]
